FAERS Safety Report 7497155-1 (Version None)
Quarter: 2011Q2

REPORT INFORMATION
  Report Type: 
  Country: None (occurrence: None)
  Receive Date: 20110516
  Receipt Date: 20110503
  Transmission Date: 20111010
  Serious: Yes (Hospitalization)
  Sender: FDA-Public Use
  Company Number: 2011MA004911

PATIENT
  Age: 56 Year
  Sex: Female

DRUGS (9)
  1. ASPIRIN [Concomitant]
  2. ISOSORBIDE DINITRATE [Concomitant]
  3. PACLITAXEL [Suspect]
     Indication: ARTERIAL RESTENOSIS
  4. BENIDIPINE [Concomitant]
  5. TICLOPIDINE HCL [Concomitant]
  6. AMLODIPINE [Concomitant]
  7. LISINOPRIL [Concomitant]
  8. BISOPROLOL FUMARATE [Concomitant]
  9. ATORVASTATIN [Concomitant]

REACTIONS (4)
  - ELECTROCARDIOGRAM ST SEGMENT ELEVATION [None]
  - IN-STENT CORONARY ARTERY RESTENOSIS [None]
  - ARTERIOSPASM CORONARY [None]
  - CHEST PAIN [None]
